FAERS Safety Report 9458082 (Version 1)
Quarter: 2013Q3

REPORT INFORMATION
  Report Type: Spontaneous
  Country: US (occurrence: None)
  Receive Date: 20130812
  Receipt Date: 20130812
  Transmission Date: 20140515
  Serious: No
  Sender: FDA-Public Use
  Company Number: None

PATIENT
  Age: 78 Year
  Sex: Female

DRUGS (1)
  1. SUTENT [Suspect]
     Dosage: 37.5MG  DAILY BY MOUTH
     Route: 048
     Dates: start: 20130411

REACTIONS (3)
  - Diarrhoea [None]
  - Anger [None]
  - Mood swings [None]
